FAERS Safety Report 6134705-1 (Version None)
Quarter: 2009Q1

REPORT INFORMATION
  Report Type: 
  Country: None (occurrence: None)
  Receive Date: 20090327
  Receipt Date: 20090318
  Transmission Date: 20090719
  Serious: Yes (Disabling)
  Sender: FDA-Public Use
  Company Number: GR-ROCHE-622559

PATIENT
  Sex: Female

DRUGS (1)
  1. BONIVA [Suspect]
     Indication: OSTEOPOROSIS
     Route: 048
     Dates: start: 20090313

REACTIONS (7)
  - ARTHRALGIA [None]
  - EMOTIONAL DISTRESS [None]
  - INFLUENZA [None]
  - PAIN [None]
  - PYREXIA [None]
  - SOMNOLENCE [None]
  - VEIN DISORDER [None]
